FAERS Safety Report 23973030 (Version 7)
Quarter: 2025Q1

REPORT INFORMATION
  Report Type: Spontaneous
  Country: US (occurrence: None)
  Receive Date: 20240613
  Receipt Date: 20250304
  Transmission Date: 20250409
  Serious: Yes (Other)
  Sender: MDD OPERATIONS
  Company Number: US-MDD US Operations-MDD202306-002587

PATIENT
  Age: 67 Year
  Sex: Female
  Weight: 47.62 kg

DRUGS (10)
  1. APOKYN [Suspect]
     Active Substance: APOMORPHINE HYDROCHLORIDE
     Indication: Parkinson^s disease
     Dates: start: 202204, end: 20230621
  2. APOKYN [Suspect]
     Active Substance: APOMORPHINE HYDROCHLORIDE
     Indication: On and off phenomenon
     Route: 058
     Dates: start: 2022
  3. APOKYN [Suspect]
     Active Substance: APOMORPHINE HYDROCHLORIDE
     Route: 058
  4. APOKYN [Suspect]
     Active Substance: APOMORPHINE HYDROCHLORIDE
     Route: 058
  5. RYTARY [Concomitant]
     Active Substance: CARBIDOPA\LEVODOPA
     Route: 048
  6. RYTARY [Concomitant]
     Active Substance: CARBIDOPA\LEVODOPA
     Route: 048
  7. SINEMET [Concomitant]
     Active Substance: CARBIDOPA\LEVODOPA
     Dosage: 25/100
  8. MESTINON [Concomitant]
     Active Substance: PYRIDOSTIGMINE BROMIDE
  9. CELEBREX [Concomitant]
     Active Substance: CELECOXIB
  10. ROPINIROLE [Concomitant]
     Active Substance: ROPINIROLE

REACTIONS (14)
  - Dystonia [Unknown]
  - Parkinson^s disease [Not Recovered/Not Resolved]
  - Fall [Unknown]
  - Rib fracture [Unknown]
  - Gait disturbance [Not Recovered/Not Resolved]
  - Balance disorder [Unknown]
  - Muscular weakness [Unknown]
  - Muscle spasms [Unknown]
  - Pain [Unknown]
  - Fall [Recovered/Resolved]
  - Expired device used [Unknown]
  - Device defective [Unknown]
  - Product dose omission issue [Unknown]
  - Inappropriate schedule of product administration [Unknown]

NARRATIVE: CASE EVENT DATE: 20230622
